FAERS Safety Report 21192963 (Version 2)
Quarter: 2023Q2

REPORT INFORMATION
  Report Type: Spontaneous
  Country: DE (occurrence: DE)
  Receive Date: 20220810
  Receipt Date: 20230419
  Transmission Date: 20230721
  Serious: Yes (Death, Life-Threatening, Hospitalization, Other)
  Sender: FDA-Public Use
  Company Number: DE-CELLTRION INC.-2022DE012427

PATIENT

DRUGS (49)
  1. RITUXIMAB [Suspect]
     Active Substance: RITUXIMAB
     Indication: Diffuse large B-cell lymphoma
     Dosage: SIX CYCLES OF RITUXIMAB, CYCLOPHOSPHAMIDE, HYDROXYDAUNORUBICIN, VINCRISTINE, AND PREDNISOLONE (R-CHO
  2. RITUXIMAB [Suspect]
     Active Substance: RITUXIMAB
     Indication: Angioimmunoblastic T-cell lymphoma
     Dosage: SIX CYCLES OF RITUXIMAB, CYCLOPHOSPHAMIDE, HYDROXYDAUNORUBICIN, VINCRISTINE, AND PREDNISOLONE (R-CHO
  3. RITUXIMAB [Suspect]
     Active Substance: RITUXIMAB
     Indication: Epstein-Barr virus test negative
     Dosage: SIX CYCLES OF RITUXIMAB, CYCLOPHOSPHAMIDE, HYDROXYDAUNORUBICIN, VINCRISTINE, AND PREDNISOLONE (R-CHO
  4. RITUXIMAB [Suspect]
     Active Substance: RITUXIMAB
     Dosage: SIX CYCLES OF RITUXIMAB, CYCLOPHOSPHAMIDE, HYDROXYDAUNORUBICIN, VINCRISTINE, AND PREDNISOLONE (R-CHO
  5. RITUXIMAB [Suspect]
     Active Substance: RITUXIMAB
     Dosage: SIX CYCLES OF RITUXIMAB, CYCLOPHOSPHAMIDE, HYDROXYDAUNORUBICIN, VINCRISTINE, AND PREDNISOLONE (R-CHO
  6. RITUXIMAB [Suspect]
     Active Substance: RITUXIMAB
     Dosage: SIX CYCLES OF RITUXIMAB, CYCLOPHOSPHAMIDE, HYDROXYDAUNORUBICIN, VINCRISTINE, AND PREDNISOLONE (R-CHO
  7. RITUXIMAB [Suspect]
     Active Substance: RITUXIMAB
     Dosage: FOLLOWED BY TWO CYCLES OF RITUXIMAB
  8. RITUXIMAB [Suspect]
     Active Substance: RITUXIMAB
     Dosage: FOLLOWED BY TWO CYCLES OF RITUXIMAB
  9. RITUXIMAB [Suspect]
     Active Substance: RITUXIMAB
     Dosage: THERAPY WITH RITUXIMAB, DEXAMETHASONE, CYTARABINE, AND CISPLATIN (R-DHAP) WAS INITIATED.
  10. RITUXIMAB [Suspect]
     Active Substance: RITUXIMAB
     Dosage: THERAPY WITH RITUXIMAB, DEXAMETHASONE, CYTARABINE, AND CISPLATIN (R-DHAP) WAS INITIATED.
  11. RITUXIMAB [Suspect]
     Active Substance: RITUXIMAB
     Dosage: UNK
  12. RITUXIMAB [Suspect]
     Active Substance: RITUXIMAB
     Dosage: SIX CYCLE
  13. CYCLOPHOSPHAMIDE\DOXORUBICIN\PREDNISONE\VINCRISTINE [Suspect]
     Active Substance: CYCLOPHOSPHAMIDE\DOXORUBICIN\PREDNISONE\VINCRISTINE
     Indication: Diffuse large B-cell lymphoma
     Dosage: SIX CYCLES OF RITUXIMAB, CYCLOPHOSPHAMIDE, HYDROXYDAUNORUBICIN, VINCRISTINE, AND PREDNISOLONE (R-CHO
  14. CYCLOPHOSPHAMIDE\DOXORUBICIN\PREDNISONE\VINCRISTINE [Suspect]
     Active Substance: CYCLOPHOSPHAMIDE\DOXORUBICIN\PREDNISONE\VINCRISTINE
     Dosage: SIX CYCLES OF RITUXIMAB, CYCLOPHOSPHAMIDE, HYDROXYDAUNORUBICIN, VINCRISTINE, AND PREDNISOLONE (R-CHO
  15. CYCLOPHOSPHAMIDE\DOXORUBICIN\PREDNISONE\VINCRISTINE [Suspect]
     Active Substance: CYCLOPHOSPHAMIDE\DOXORUBICIN\PREDNISONE\VINCRISTINE
     Dosage: SIX CYCLES OF RITUXIMAB, CYCLOPHOSPHAMIDE, HYDROXYDAUNORUBICIN, VINCRISTINE, AND PREDNISOLONE (R-CHO
  16. CYCLOPHOSPHAMIDE\DOXORUBICIN\PREDNISONE\VINCRISTINE [Suspect]
     Active Substance: CYCLOPHOSPHAMIDE\DOXORUBICIN\PREDNISONE\VINCRISTINE
     Dosage: SIX CYCLES OF RITUXIMAB, CYCLOPHOSPHAMIDE, HYDROXYDAUNORUBICIN, VINCRISTINE, AND PREDNISOLONE (R-CHO
  17. CYCLOPHOSPHAMIDE\DOXORUBICIN\PREDNISONE\VINCRISTINE [Suspect]
     Active Substance: CYCLOPHOSPHAMIDE\DOXORUBICIN\PREDNISONE\VINCRISTINE
     Dosage: SIX CYCLES OF RITUXIMAB, CYCLOPHOSPHAMIDE, HYDROXYDAUNORUBICIN, VINCRISTINE, AND PREDNISOLONE (R-CHO
  18. CYCLOPHOSPHAMIDE\DOXORUBICIN\PREDNISONE\VINCRISTINE [Suspect]
     Active Substance: CYCLOPHOSPHAMIDE\DOXORUBICIN\PREDNISONE\VINCRISTINE
     Dosage: SIX CYCLES OF RITUXIMAB, CYCLOPHOSPHAMIDE, HYDROXYDAUNORUBICIN, VINCRISTINE, AND PREDNISOLONE (R-CHO
  19. CISPLATIN\CYTARABINE\DEXAMETHASONE [Suspect]
     Active Substance: CISPLATIN\CYTARABINE\DEXAMETHASONE
     Indication: Angioimmunoblastic T-cell lymphoma
     Dosage: THERAPY WITH RITUXIMAB, DEXAMETHASONE, CYTARABINE, AND CISPLATIN (R-DHAP) WAS INITIATED.
  20. CISPLATIN\CYTARABINE\DEXAMETHASONE [Suspect]
     Active Substance: CISPLATIN\CYTARABINE\DEXAMETHASONE
     Indication: Diffuse large B-cell lymphoma
     Dosage: THERAPY WITH RITUXIMAB, DEXAMETHASONE, CYTARABINE, AND CISPLATIN (R-DHAP) WAS INITIATED.
  21. CISPLATIN\CYTARABINE\DEXAMETHASONE [Suspect]
     Active Substance: CISPLATIN\CYTARABINE\DEXAMETHASONE
     Indication: Epstein-Barr virus test negative
  22. GEMCITABINE HYDROCHLORIDE\OXALIPLATIN [Suspect]
     Active Substance: GEMCITABINE HYDROCHLORIDE\OXALIPLATIN
     Indication: Angioimmunoblastic T-cell lymphoma
     Dosage: THE CHOSEN TREATMENT REGIME WAS RITUXIMAB, GEMCITABINE, AND OXALIPLATIN (R-GEMOX); ACCORDING TO A GO
  23. GEMCITABINE HYDROCHLORIDE\OXALIPLATIN [Suspect]
     Active Substance: GEMCITABINE HYDROCHLORIDE\OXALIPLATIN
     Indication: Diffuse large B-cell lymphoma
  24. GEMCITABINE HYDROCHLORIDE\OXALIPLATIN [Suspect]
     Active Substance: GEMCITABINE HYDROCHLORIDE\OXALIPLATIN
     Indication: Epstein-Barr virus test negative
  25. CARBOPLATIN\ETOPOSIDE\IFOSFAMIDE [Suspect]
     Active Substance: CARBOPLATIN\ETOPOSIDE\IFOSFAMIDE
     Indication: Angioimmunoblastic T-cell lymphoma
     Dosage: ESCALATED TO RITUXIMAB, IFOSFAMIDE, CARBOPLATIN, AND ETOPOSIDE (R-ICE)
  26. CARBOPLATIN\ETOPOSIDE\IFOSFAMIDE [Suspect]
     Active Substance: CARBOPLATIN\ETOPOSIDE\IFOSFAMIDE
     Indication: Diffuse large B-cell lymphoma
  27. CARBOPLATIN\ETOPOSIDE\IFOSFAMIDE [Suspect]
     Active Substance: CARBOPLATIN\ETOPOSIDE\IFOSFAMIDE
     Indication: Epstein-Barr virus test negative
  28. PREDNISOLONE [Suspect]
     Active Substance: PREDNISOLONE
     Indication: Product used for unknown indication
     Dosage: 550 MG IN TOTAL, AT/SHORTLY BEFORE DETECTION OF VIREMIA
  29. PREDNISOLONE [Suspect]
     Active Substance: PREDNISOLONE
     Indication: Diffuse large B-cell lymphoma
  30. CIDOFOVIR [Suspect]
     Active Substance: CIDOFOVIR
     Indication: Adenovirus infection
     Dosage: UNK
  31. CIDOFOVIR [Suspect]
     Active Substance: CIDOFOVIR
     Dosage: REDUCED TO 50 MG
  32. CIDOFOVIR [Suspect]
     Active Substance: CIDOFOVIR
     Dosage: 450 MG
  33. IFOSFAMIDE [Suspect]
     Active Substance: IFOSFAMIDE
     Indication: Diffuse large B-cell lymphoma
     Route: 065
  34. IFOSFAMIDE [Suspect]
     Active Substance: IFOSFAMIDE
     Indication: Angioimmunoblastic T-cell lymphoma
  35. CARBOPLATIN [Suspect]
     Active Substance: CARBOPLATIN
     Indication: Diffuse large B-cell lymphoma
     Route: 065
  36. CARBOPLATIN [Suspect]
     Active Substance: CARBOPLATIN
     Indication: Angioimmunoblastic T-cell lymphoma
  37. ETOPOSIDE [Suspect]
     Active Substance: ETOPOSIDE
     Indication: Diffuse large B-cell lymphoma
     Route: 065
  38. ETOPOSIDE [Suspect]
     Active Substance: ETOPOSIDE
     Indication: Angioimmunoblastic T-cell lymphoma
  39. GEMCITABINE [Suspect]
     Active Substance: GEMCITABINE
     Indication: Diffuse large B-cell lymphoma
     Route: 065
  40. GEMCITABINE [Suspect]
     Active Substance: GEMCITABINE
     Indication: Angioimmunoblastic T-cell lymphoma
  41. OXALIPLATIN [Suspect]
     Active Substance: OXALIPLATIN
     Indication: Diffuse large B-cell lymphoma
     Route: 065
  42. OXALIPLATIN [Suspect]
     Active Substance: OXALIPLATIN
     Indication: Angioimmunoblastic T-cell lymphoma
  43. ACETYLCYSTEINE [Suspect]
     Active Substance: ACETYLCYSTEINE
     Indication: Diffuse large B-cell lymphoma
     Route: 065
  44. CYCLOPHOSPHAMIDE [Suspect]
     Active Substance: CYCLOPHOSPHAMIDE
     Indication: Diffuse large B-cell lymphoma
     Route: 065
  45. EPIRUBICIN [Suspect]
     Active Substance: EPIRUBICIN
     Indication: Diffuse large B-cell lymphoma
     Route: 065
  46. VINCRISTINE [Suspect]
     Active Substance: VINCRISTINE
     Indication: Diffuse large B-cell lymphoma
     Route: 065
  47. CISPLATIN [Suspect]
     Active Substance: CISPLATIN
     Indication: Diffuse large B-cell lymphoma
     Route: 065
  48. CYTARABINE [Suspect]
     Active Substance: CYTARABINE
     Indication: Diffuse large B-cell lymphoma
     Route: 065
  49. DEXAMETHASONE [Suspect]
     Active Substance: DEXAMETHASONE
     Indication: Diffuse large B-cell lymphoma
     Route: 065

REACTIONS (16)
  - Cardiac arrest [Fatal]
  - Acute hepatic failure [Fatal]
  - Febrile neutropenia [Fatal]
  - Hepatitis fulminant [Unknown]
  - Angioimmunoblastic T-cell lymphoma [Unknown]
  - Diffuse large B-cell lymphoma recurrent [Unknown]
  - Renal failure [Fatal]
  - Renal failure [Unknown]
  - Sepsis [Fatal]
  - Respiratory failure [Fatal]
  - Pneumonia adenoviral [Fatal]
  - Adenoviral hepatitis [Fatal]
  - Adenovirus reactivation [Unknown]
  - Atypical pneumonia [Unknown]
  - Immunosuppression [Unknown]
  - Off label use [Unknown]
